FAERS Safety Report 19402913 (Version 1)
Quarter: 2021Q2

REPORT INFORMATION
  Report Type: Spontaneous
  Country: US (occurrence: US)
  Receive Date: 20210610
  Receipt Date: 20210610
  Transmission Date: 20210717
  Serious: No
  Sender: FDA-Public Use
  Company Number: US-INCYTE CORPORATION-2021IN004945

PATIENT

DRUGS (1)
  1. JAKAFI [Suspect]
     Active Substance: RUXOLITINIB
     Indication: MYELOPROLIFERATIVE NEOPLASM
     Dosage: 5 MILLIGRAM (OTHER)
     Route: 048
     Dates: start: 202103

REACTIONS (2)
  - Off label use [Unknown]
  - Fatigue [Unknown]

NARRATIVE: CASE EVENT DATE: 2021
